FAERS Safety Report 15089103 (Version 1)
Quarter: 2018Q2

REPORT INFORMATION
  Report Type: Spontaneous
  Country: US (occurrence: US)
  Receive Date: 20180629
  Receipt Date: 20180629
  Transmission Date: 20180711
  Serious: No
  Sender: FDA-Public Use
  Company Number: US-SA-2018SA169573

PATIENT
  Age: 61 Year
  Sex: Female

DRUGS (2)
  1. KEVZARA [Suspect]
     Active Substance: SARILUMAB
     Dosage: 200 MG, QOW
     Route: 058
  2. KEVZARA [Suspect]
     Active Substance: SARILUMAB
     Indication: MULTIPLE SCLEROSIS
     Dosage: 200 MG, QOW
     Route: 058

REACTIONS (4)
  - Product use in unapproved indication [Unknown]
  - Neutropenia [Not Recovered/Not Resolved]
  - Drug dose omission [Unknown]
  - White blood cell count decreased [Not Recovered/Not Resolved]

NARRATIVE: CASE EVENT DATE: 20180201
